FAERS Safety Report 8436879-6 (Version None)
Quarter: 2012Q2

REPORT INFORMATION
  Report Type: 
  Country: None (occurrence: None)
  Receive Date: 20120323
  Receipt Date: 20111216
  Transmission Date: 20120825
  Serious: Yes (Hospitalization, Other)
  Sender: FDA-Public Use
  Company Number: 163-21880-11063891

PATIENT
  Age: 75 Year
  Sex: Male

DRUGS (2)
  1. REVLIMID [Suspect]
  2. REVLIMID [Suspect]
     Indication: MULTIPLE MYELOMA
     Dosage: 5 MG, 1 IN 1 D, PO
     Route: 048
     Dates: start: 20110210

REACTIONS (9)
  - INTERSTITIAL LUNG DISEASE [None]
  - HEAT RASH [None]
  - THROMBOSIS [None]
  - DIARRHOEA [None]
  - CONSTIPATION [None]
  - CONDITION AGGRAVATED [None]
  - FAECES DISCOLOURED [None]
  - ANAEMIA [None]
  - CONTUSION [None]
